FAERS Safety Report 25776906 (Version 2)
Quarter: 2025Q4

REPORT INFORMATION
  Report Type: Spontaneous
  Country: SG (occurrence: SG)
  Receive Date: 20250909
  Receipt Date: 20251017
  Transmission Date: 20260118
  Serious: Yes (Hospitalization)
  Sender: ROCHE
  Company Number: SG-ROCHE-10000380162

PATIENT
  Age: 75 Year
  Sex: Female

DRUGS (2)
  1. PERJETA [Suspect]
     Active Substance: PERTUZUMAB
     Indication: Breast cancer metastatic
     Route: 065
     Dates: start: 202112, end: 202206
  2. HERCEPTIN [Suspect]
     Active Substance: TRASTUZUMAB
     Indication: Breast cancer metastatic
     Route: 065
     Dates: start: 202112, end: 202206

REACTIONS (3)
  - Inflammation [Unknown]
  - Gastrointestinal disorder [Unknown]
  - Disease progression [Unknown]

NARRATIVE: CASE EVENT DATE: 20250901
